FAERS Safety Report 10346809 (Version 3)
Quarter: 2014Q4

REPORT INFORMATION
  Report Type: Spontaneous
  Country: US (occurrence: US)
  Receive Date: 20140729
  Receipt Date: 20141110
  Transmission Date: 20150528
  Serious: Yes (Other)
  Sender: FDA-Public Use
  Company Number: US-BEH-2014043967

PATIENT
  Age: 62 Year
  Sex: Female
  Weight: 85 kg

DRUGS (26)
  1. CALTRATE WITH D [Concomitant]
  2. CLARINEX [Concomitant]
     Active Substance: DESLORATADINE
  3. MAGNESIUM [Concomitant]
     Active Substance: MAGNESIUM
  4. GABAPENTIN. [Concomitant]
     Active Substance: GABAPENTIN
  5. WELLBUTRIN [Concomitant]
     Active Substance: BUPROPION HYDROCHLORIDE
  6. MULTIVITAMINS [Concomitant]
     Active Substance: VITAMINS
  7. PLAVIX [Concomitant]
     Active Substance: CLOPIDOGREL BISULFATE
  8. LEVOTHYROXINE [Concomitant]
     Active Substance: LEVOTHYROXINE
  9. HIZENTRA [Suspect]
     Active Substance: HUMAN IMMUNOGLOBULIN G
     Indication: IMMUNODEFICIENCY
     Dosage: VIA 3-4 SITES OVER 1-2 HOURS
     Route: 058
  10. ALBUTEROL SULFATE HFA [Concomitant]
  11. COENZYME Q10 [Concomitant]
     Active Substance: UBIDECARENONE
  12. HIZENTRA [Suspect]
     Active Substance: HUMAN IMMUNOGLOBULIN G
     Dosage: 10 GM 50 ML VIAL; 3-4 SITES OVER 1-2 HOURS
     Route: 058
     Dates: start: 20140715, end: 20140715
  13. HIZENTRA [Suspect]
     Active Substance: HUMAN IMMUNOGLOBULIN G
     Dosage: VIA 3-4 SITES OVER 1-2 HOURS
     Route: 058
  14. BENADRYL [Concomitant]
     Active Substance: DIPHENHYDRAMINE HYDROCHLORIDE
  15. LEXAPRO [Concomitant]
     Active Substance: ESCITALOPRAM OXALATE
  16. ZETIA [Concomitant]
     Active Substance: EZETIMIBE
  17. FOLIC ACID. [Concomitant]
     Active Substance: FOLIC ACID
  18. ALPENZIN [Concomitant]
  19. HIZENTRA [Suspect]
     Active Substance: HUMAN IMMUNOGLOBULIN G
     Dosage: 1 GM 5 ML VIAL; 3-4 SITES OVER 1-2 HOURS
     Route: 058
     Dates: start: 20140715, end: 20140715
  20. HIZENTRA [Suspect]
     Active Substance: HUMAN IMMUNOGLOBULIN G
     Dosage: 2 GM 10ML VIAL; 3-4 SITES OVER 1-2 HOURS
     Route: 058
     Dates: start: 20140715, end: 20140715
  21. LIVALO [Concomitant]
     Active Substance: PITAVASTATIN CALCIUM
  22. AMLODIPINE BESYLATE. [Concomitant]
     Active Substance: AMLODIPINE BESYLATE
  23. VITAMIN D [Concomitant]
     Active Substance: CHOLECALCIFEROL
  24. EPIPEN [Concomitant]
     Active Substance: EPINEPHRINE
  25. SYNTHROID [Concomitant]
     Active Substance: LEVOTHYROXINE SODIUM
  26. ECOTRIN [Concomitant]
     Active Substance: ASPIRIN

REACTIONS (4)
  - Dysphagia [Unknown]
  - Dysphagia [Unknown]
  - Urticaria [Unknown]
  - Erythema [Unknown]

NARRATIVE: CASE EVENT DATE: 20140715
